FAERS Safety Report 13394176 (Version 1)
Quarter: 2017Q1

REPORT INFORMATION
  Report Type: Spontaneous
  Country: US (occurrence: US)
  Receive Date: 20170331
  Receipt Date: 20170331
  Transmission Date: 20170429
  Serious: No
  Sender: FDA-Public Use
  Company Number: None

PATIENT
  Age: 43 Year
  Sex: Male

DRUGS (1)
  1. XOLAIR [Suspect]
     Active Substance: OMALIZUMAB
     Indication: ASTHMA
     Route: 058
     Dates: start: 201701

REACTIONS (5)
  - Pulmonary congestion [None]
  - Fall [None]
  - Swelling [None]
  - Wheezing [None]
  - Eye pruritus [None]

NARRATIVE: CASE EVENT DATE: 201703
